FAERS Safety Report 18289335 (Version 1)
Quarter: 2020Q3

REPORT INFORMATION
  Report Type: Report from Study
  Country: US (occurrence: US)
  Receive Date: 20200921
  Receipt Date: 20200921
  Transmission Date: 20201103
  Serious: Yes (Death)
  Sender: FDA-Public Use
  Company Number: US-ASTRAZENECA-2020SF20461

PATIENT
  Age: 70 Year
  Sex: Female

DRUGS (12)
  1. ELIQUIS [Concomitant]
     Active Substance: APIXABAN
  2. NORCO [Concomitant]
     Active Substance: ACETAMINOPHEN\HYDROCODONE BITARTRATE
  3. SYNTHROID [Concomitant]
     Active Substance: LEVOTHYROXINE SODIUM
  4. METOPROLOL. [Suspect]
     Active Substance: METOPROLOL
     Route: 065
  5. TAGRISSO [Suspect]
     Active Substance: OSIMERTINIB
     Indication: NON-SMALL CELL LUNG CANCER
     Route: 048
     Dates: start: 20190718
  6. CLONIDINE. [Concomitant]
     Active Substance: CLONIDINE
  7. NOVOLOG [Concomitant]
     Active Substance: INSULIN ASPART
  8. TOUJEO [Concomitant]
     Active Substance: INSULIN GLARGINE
  9. PROZAC [Concomitant]
     Active Substance: FLUOXETINE HYDROCHLORIDE
  10. NORVASC [Concomitant]
     Active Substance: AMLODIPINE BESYLATE
  11. MICARDIS [Concomitant]
     Active Substance: TELMISARTAN
  12. TRESIBA [Concomitant]
     Active Substance: INSULIN DEGLUDEC

REACTIONS (1)
  - Death [Fatal]

NARRATIVE: CASE EVENT DATE: 202009
